FAERS Safety Report 9078443 (Version 1)
Quarter: 2013Q1

REPORT INFORMATION
  Report Type: Report from Study
  Country: US (occurrence: US)
  Receive Date: 20130130
  Receipt Date: 20130130
  Transmission Date: 20140127
  Serious: Yes (Hospitalization)
  Sender: FDA-Public Use
  Company Number: US-ABBOTT-12P-163-0972388-00

PATIENT
  Age: 17 Year
  Sex: Female

DRUGS (2)
  1. HUMIRA 40 MG/0.8 ML PEN [Suspect]
     Indication: CROHN^S DISEASE
     Dates: start: 200908
  2. AMITRIPTYLINE [Concomitant]
     Indication: NEURALGIA

REACTIONS (5)
  - Crohn^s disease [Unknown]
  - Pain [Unknown]
  - Diarrhoea [Unknown]
  - Overgrowth bacterial [Unknown]
  - Incorrect dose administered [Unknown]
